FAERS Safety Report 4874587-9 (Version None)
Quarter: 2006Q1

REPORT INFORMATION
  Report Type: 
  Country: None (occurrence: None)
  Receive Date: 20060106
  Receipt Date: 20060104
  Transmission Date: 20060701
  Serious: Yes (Hospitalization)
  Sender: FDA-Public Use
  Company Number: NL-MERCK-0601NLD00001

PATIENT
  Age: 47 Year
  Sex: Male

DRUGS (6)
  1. SINGULAIR [Suspect]
     Indication: CHRONIC OBSTRUCTIVE PULMONARY DISEASE
     Route: 048
     Dates: start: 20030602, end: 20051108
  2. ALBUTEROL SULFATE AND IPRATROPIUM BROMIDE [Concomitant]
     Route: 055
  3. THEOPHYLLINE [Concomitant]
     Route: 048
  4. TIOTROPIUM BROMIDE [Concomitant]
     Route: 055
  5. FLUTICASONE PROPIONATE AND SALMETEROL XINAFOATE [Concomitant]
     Route: 055
  6. LISINOPRIL [Concomitant]
     Route: 048

REACTIONS (4)
  - MYALGIA [None]
  - MYOCARDIAL INFARCTION [None]
  - PARAESTHESIA [None]
  - SLEEP ATTACKS [None]
